FAERS Safety Report 15346945 (Version 3)
Quarter: 2018Q4

REPORT INFORMATION
  Report Type: Spontaneous
  Country: US (occurrence: US)
  Receive Date: 20180904
  Receipt Date: 20181206
  Transmission Date: 20190204
  Serious: Yes (Congenital Anomaly, Other)
  Sender: FDA-Public Use
  Company Number: PHEH2018US036132

PATIENT
  Sex: Female

DRUGS (2)
  1. ZOFRAN [Suspect]
     Active Substance: ONDANSETRON HYDROCHLORIDE
     Indication: FOETAL EXPOSURE DURING PREGNANCY
     Dosage: MOTHER^S DOSE: 4 MG, BID
     Route: 064
  2. ONDANSETRON DR REDDY [Suspect]
     Active Substance: ONDANSETRON
     Indication: FOETAL EXPOSURE DURING PREGNANCY
     Dosage: MOTHER^S DOSE: 1 DF, Q8H
     Route: 064

REACTIONS (21)
  - Pulmonary valve stenosis congenital [Unknown]
  - Bronchial hyperreactivity [Unknown]
  - Dermatitis contact [Unknown]
  - Contusion [Unknown]
  - Influenza [Unknown]
  - Speech disorder [Unknown]
  - Fallot^s tetralogy [Unknown]
  - Pulmonary hypoplasia [Unknown]
  - Patent ductus arteriosus [Unknown]
  - Congenital arterial malformation [Unknown]
  - Atrial septal defect [Unknown]
  - Limb injury [Unknown]
  - Ventricular septal defect [Unknown]
  - Right aortic arch [Unknown]
  - Cardiac murmur [Unknown]
  - Right ventricular hypertrophy [Unknown]
  - Foetal exposure during pregnancy [Unknown]
  - Viral infection [Unknown]
  - Pulmonary valve incompetence [Unknown]
  - Injury [Unknown]
  - Rhinitis [Unknown]
